FAERS Safety Report 9844696 (Version 1)
Quarter: 2014Q1

REPORT INFORMATION
  Report Type: Spontaneous
  Country: US (occurrence: None)
  Receive Date: 20140123
  Receipt Date: 20140123
  Transmission Date: 20141002
  Serious: Yes (Other)
  Sender: FDA-Public Use
  Company Number: None

PATIENT
  Age: 69 Year
  Sex: 0
  Weight: 73.94 kg

DRUGS (2)
  1. CIPROFLOXACIN HCL [Suspect]
     Indication: URINARY TRACT INFECTION
     Route: 048
     Dates: start: 20130304, end: 20140113
  2. CIPROFLOXACIN HCL [Suspect]
     Indication: URINARY TRACT INFECTION
     Route: 048
     Dates: start: 20130304, end: 20140113

REACTIONS (7)
  - Urticaria [None]
  - Malaise [None]
  - Asthenia [None]
  - Nausea [None]
  - Dizziness [None]
  - Arrhythmia [None]
  - Dysgeusia [None]
